FAERS Safety Report 19884665 (Version 1)
Quarter: 2021Q3

REPORT INFORMATION
  Report Type: Spontaneous
  Country: US (occurrence: US)
  Receive Date: 20210923
  Receipt Date: 20210923
  Transmission Date: 20211014
  Serious: No
  Sender: FDA-Public Use
  Company Number: None

PATIENT
  Age: 89 Year
  Sex: Female

DRUGS (1)
  1. CAPECITABINE TAB 500MG [Suspect]
     Active Substance: CAPECITABINE
     Dates: start: 202108

REACTIONS (5)
  - Platelet count decreased [None]
  - Contusion [None]
  - Therapy interrupted [None]
  - Induration [None]
  - Wrong technique in product usage process [None]

NARRATIVE: CASE EVENT DATE: 20210907
